FAERS Safety Report 23321156 (Version 1)
Quarter: 2023Q4

REPORT INFORMATION
  Report Type: Spontaneous
  Country: JP (occurrence: JP)
  Receive Date: 20231220
  Receipt Date: 20231220
  Transmission Date: 20240110
  Serious: Yes (Other)
  Sender: FDA-Public Use
  Company Number: JP-OTSUKA-2023_032582

PATIENT
  Age: 44 Year
  Sex: Female

DRUGS (14)
  1. SAMSCA [Suspect]
     Active Substance: TOLVAPTAN
     Indication: Congenital cystic kidney disease
     Dosage: 60MG
     Route: 065
  2. SAMSCA [Suspect]
     Active Substance: TOLVAPTAN
     Dosage: 30MG
     Route: 065
     Dates: end: 2020
  3. SAMSCA [Suspect]
     Active Substance: TOLVAPTAN
     Dosage: 45MG
     Route: 065
     Dates: start: 2020
  4. SAMSCA [Suspect]
     Active Substance: TOLVAPTAN
     Dosage: 60MG
     Route: 065
     Dates: end: 2021
  5. SAMSCA [Suspect]
     Active Substance: TOLVAPTAN
     Dosage: 45MG
     Route: 065
     Dates: start: 2021, end: 2021
  6. SAMSCA [Suspect]
     Active Substance: TOLVAPTAN
     Dosage: 60MG
     Route: 065
     Dates: start: 2021
  7. NIFEDIPINE [Concomitant]
     Active Substance: NIFEDIPINE
     Indication: Product used for unknown indication
     Dosage: 80MG
     Route: 048
  8. NIFEDIPINE [Concomitant]
     Active Substance: NIFEDIPINE
     Dosage: 100MG
     Route: 048
  9. SODIUM BICARBONATE [Concomitant]
     Active Substance: SODIUM BICARBONATE
     Indication: Product used for unknown indication
     Dosage: 2000MG
     Route: 048
  10. FEBUXOSTAT [Concomitant]
     Active Substance: FEBUXOSTAT
     Indication: Product used for unknown indication
     Dosage: 10MG
     Route: 048
  11. CARVEDILOL [Concomitant]
     Active Substance: CARVEDILOL
     Indication: Product used for unknown indication
     Dosage: 10MG
     Route: 048
  12. ALFACALCIDOL [Concomitant]
     Active Substance: ALFACALCIDOL
     Indication: Product used for unknown indication
     Dosage: 0.25MCG
     Route: 048
  13. VONOPRAZAN FUMARATE [Concomitant]
     Active Substance: VONOPRAZAN FUMARATE
     Indication: Product used for unknown indication
     Dosage: 10MG
     Route: 048
  14. BILASTINE [Concomitant]
     Active Substance: BILASTINE
     Indication: Product used for unknown indication
     Dosage: 20MG
     Route: 048

REACTIONS (4)
  - Acute kidney injury [Unknown]
  - Dehydration [Unknown]
  - Oedema [Unknown]
  - Blood pressure systolic increased [Unknown]

NARRATIVE: CASE EVENT DATE: 20210901
